FAERS Safety Report 8615856-6 (Version None)
Quarter: 2012Q3

REPORT INFORMATION
  Report Type: 
  Country: None (occurrence: None)
  Receive Date: 20120823
  Receipt Date: 20110729
  Transmission Date: 20120928
  Serious: Yes (Hospitalization)
  Sender: FDA-Public Use
  Company Number: FR-SHIRE-ALL1-2011-04608

PATIENT
  Sex: Male

DRUGS (10)
  1. MIDODRINE HYDROCHLORIDE [Suspect]
     Indication: PRODUCT USED FOR UNKNOWN INDICATION
     Dosage: 2.5 MG, UNKNOWN
     Route: 048
     Dates: end: 20090910
  2. INEXIUM                            /01479303/ [Concomitant]
     Indication: PRODUCT USED FOR UNKNOWN INDICATION
     Dosage: 20 MG, UNKNOWN
     Route: 048
  3. ASPIRIN [Concomitant]
     Indication: PRODUCT USED FOR UNKNOWN INDICATION
     Dosage: 75 MG, 1X/DAY:QD
     Route: 048
  4. XELODA [Suspect]
     Indication: COLON CANCER
     Dosage: UNK, UNKNOWN
     Route: 048
     Dates: end: 20090910
  5. MIDODRINE HYDROCHLORIDE [Suspect]
     Dosage: UNK UNK, UNKNOWN
     Route: 048
     Dates: start: 20090914
  6. DEPAMIDE [Concomitant]
     Indication: PRODUCT USED FOR UNKNOWN INDICATION
     Dosage: 300 MG, UNKNOWN
     Route: 048
  7. EQUANIL [Concomitant]
     Indication: PRODUCT USED FOR UNKNOWN INDICATION
     Dosage: 400 MG, UNKNOWN
     Route: 048
  8. SINEMET [Concomitant]
     Indication: PRODUCT USED FOR UNKNOWN INDICATION
     Dosage: 5 DF, OTHER(100MG/10MG)
     Route: 048
  9. CLONAZEPAM [Concomitant]
     Indication: PRODUCT USED FOR UNKNOWN INDICATION
     Dosage: 5 GTT, (2.5 MG/ML)UNKNOWN
     Route: 048
  10. MEMAMTINE HYDROCHLORIDE [Concomitant]
     Indication: PRODUCT USED FOR UNKNOWN INDICATION
     Dosage: 2 DF(10MG), UNKNOWN
     Route: 048

REACTIONS (3)
  - FAECALOMA [None]
  - ABDOMINAL PAIN [None]
  - ENTEROCOLITIS BACTERIAL [None]
